FAERS Safety Report 6537749-0 (Version None)
Quarter: 2009Q4

REPORT INFORMATION
  Report Type: 
  Country: None (occurrence: None)
  Receive Date: 20091229
  Receipt Date: 20091021
  Transmission Date: 20100525
  Serious: No
  Sender: FDA-Public Use
  Company Number: 1000009626

PATIENT
  Age: 61 Year
  Sex: Female

DRUGS (5)
  1. BYSTOLIC [Suspect]
     Indication: HYPERTENSION
     Dosage: 10 MG (5 MG,2 IN 1 D),ORAL
     Route: 048
     Dates: start: 20090101, end: 20090301
  2. BYSTOLIC [Suspect]
     Indication: HYPERTENSION
     Dosage: (5 MG,1 D),ORAL ; 7.5 MG (7.5 MG,1 IN 1 D),ORAL
     Route: 048
     Dates: start: 20090301, end: 20090901
  3. BYSTOLIC [Suspect]
     Indication: HYPERTENSION
     Dosage: (5 MG,1 D),ORAL ; 7.5 MG (7.5 MG,1 IN 1 D),ORAL
     Route: 048
     Dates: start: 20090901
  4. VITAMIN D [Concomitant]
  5. SYNTHROID [Concomitant]

REACTIONS (7)
  - BLOOD PRESSURE FLUCTUATION [None]
  - DIZZINESS [None]
  - GAIT DISTURBANCE [None]
  - HOT FLUSH [None]
  - HYPERHIDROSIS [None]
  - PALPITATIONS [None]
  - TREMOR [None]
